FAERS Safety Report 8112324-5 (Version None)
Quarter: 2012Q1

REPORT INFORMATION
  Report Type: 
  Country: None (occurrence: None)
  Receive Date: 20120203
  Receipt Date: 20120126
  Transmission Date: 20120608
  Serious: Yes (Hospitalization, Other)
  Sender: FDA-Public Use
  Company Number: DE-ALEXION-A201101695

PATIENT
  Sex: Female
  Weight: 70 kg

DRUGS (5)
  1. SOLIRIS [Suspect]
     Indication: HAEMOLYTIC URAEMIC SYNDROME
     Dosage: 900 MG, SINGLE
     Route: 042
     Dates: start: 20110610, end: 20110610
  2. ACETYLCYSTEINE [Concomitant]
     Indication: ENDOTRACHEAL INTUBATION
     Dosage: 600 MG, QD
     Route: 048
     Dates: start: 20110601, end: 20110701
  3. SOLIRIS [Suspect]
     Dosage: 1200 MG, UNK
     Route: 042
     Dates: start: 20110719, end: 20110802
  4. KEPPRA [Concomitant]
     Indication: CONVULSION PROPHYLAXIS
     Dosage: 1000 MG, QD
     Route: 048
     Dates: start: 20110608, end: 20110801
  5. SOLIRIS [Suspect]
     Dosage: 600 MG, UNK
     Route: 042
     Dates: start: 20110610, end: 20110711

REACTIONS (1)
  - ACUTE MYELOID LEUKAEMIA [None]
